FAERS Safety Report 11286163 (Version 1)
Quarter: 2015Q3

REPORT INFORMATION
  Report Type: Spontaneous
  Country: IR (occurrence: None)
  Receive Date: 20150717
  Receipt Date: 20150717
  Transmission Date: 20151125
  Serious: Yes (Hospitalization, Other)
  Sender: FDA-Public Use
  Company Number: ADR-2015-01334

PATIENT
  Age: 6 Year
  Sex: Male

DRUGS (1)
  1. BACLOFEN. [Suspect]
     Active Substance: BACLOFEN
     Indication: DYSURIA
     Dosage: 10MG X 2

REACTIONS (15)
  - Coma [None]
  - Hypotonia [None]
  - Ataxia [None]
  - Disorientation [None]
  - Loss of consciousness [None]
  - Muscle disorder [None]
  - Areflexia [None]
  - Dysaesthesia [None]
  - Hallucination, tactile [None]
  - Chorea [None]
  - Hypotension [None]
  - Dyskinesia [None]
  - Intention tremor [None]
  - Mydriasis [None]
  - Initial insomnia [None]

NARRATIVE: CASE EVENT DATE: 20141208
